FAERS Safety Report 23041740 (Version 2)
Quarter: 2023Q4

REPORT INFORMATION
  Report Type: Spontaneous
  Country: US (occurrence: US)
  Receive Date: 20231007
  Receipt Date: 20231019
  Transmission Date: 20240110
  Serious: No
  Sender: FDA-Public Use
  Company Number: US-SA-SAC20231004000731

PATIENT
  Age: 16 Year
  Sex: Male
  Weight: 46.72 kg

DRUGS (1)
  1. DUPIXENT [Suspect]
     Active Substance: DUPILUMAB
     Indication: Dermatitis atopic
     Dosage: 200 MG, QOW
     Route: 058
     Dates: start: 20221012

REACTIONS (3)
  - Fear of injection [Unknown]
  - Injection site pain [Unknown]
  - Drug ineffective [Unknown]
